FAERS Safety Report 24415856 (Version 1)
Quarter: 2024Q4

REPORT INFORMATION
  Report Type: Report from Study
  Country: BR (occurrence: BR)
  Receive Date: 20241009
  Receipt Date: 20241009
  Transmission Date: 20250114
  Serious: Yes (Other)
  Sender: TAKEDA
  Company Number: BR-TAKEDA-2024TUS097753

PATIENT
  Age: 59 Year
  Sex: Male

DRUGS (5)
  1. VEDOLIZUMAB [Suspect]
     Active Substance: VEDOLIZUMAB
     Indication: Crohn^s disease
     Dosage: 300 MILLIGRAM
     Route: 042
     Dates: start: 20211231
  2. VEDOLIZUMAB [Suspect]
     Active Substance: VEDOLIZUMAB
     Dosage: 300 MILLIGRAM, Q4WEEKS
     Route: 042
  3. MESALAMINE [Suspect]
     Active Substance: MESALAMINE
     Indication: Product used for unknown indication
     Dosage: 1 MILLIGRAM
     Route: 065
  4. MODULA [Concomitant]
     Dosage: UNK
  5. NOVALGINA [Concomitant]
     Active Substance: ACETAMINOPHEN\CAFFEINE
     Dosage: UNK

REACTIONS (8)
  - Bone marrow failure [Unknown]
  - Frequent bowel movements [Not Recovered/Not Resolved]
  - Rheumatic disorder [Recovering/Resolving]
  - Inappropriate schedule of product administration [Recovered/Resolved]
  - Poor quality sleep [Unknown]
  - Fatigue [Not Recovered/Not Resolved]
  - Product availability issue [Unknown]
  - Product dose omission issue [Unknown]

NARRATIVE: CASE EVENT DATE: 20240716
